FAERS Safety Report 23062405 (Version 1)
Quarter: 2023Q4

REPORT INFORMATION
  Report Type: Spontaneous
  Country: US (occurrence: US)
  Receive Date: 20231013
  Receipt Date: 20231013
  Transmission Date: 20240110
  Serious: No
  Sender: FDA-Public Use
  Company Number: US-GSKCCFUS-Case-01824116_AE-102012

PATIENT
  Sex: Female

DRUGS (1)
  1. NUCALA [Suspect]
     Active Substance: MEPOLIZUMAB
     Indication: Asthma
     Dosage: UNK (CYC)
     Route: 058
     Dates: start: 20230505, end: 20230705

REACTIONS (3)
  - Humerus fracture [Unknown]
  - Fall [Unknown]
  - Hypotension [Unknown]
